FAERS Safety Report 7752600-9 (Version None)
Quarter: 2011Q3

REPORT INFORMATION
  Report Type: 
  Country: None (occurrence: None)
  Receive Date: 20110913
  Receipt Date: 20110830
  Transmission Date: 20111222
  Serious: Yes (Death, Other)
  Sender: FDA-Public Use
  Company Number: FK201101838

PATIENT
  Sex: Female

DRUGS (5)
  1. RITUXIMAB (RITUXIMAB) (RITUXIMAB) [Suspect]
     Indication: LYMPHOMA
  2. DOXORUBICIN HCL [Suspect]
     Indication: LYMPHOMA
  3. VINCRISTINE [Suspect]
     Indication: LYMPHOMA
  4. CYCLOPHOSPHAMIDE [Suspect]
     Indication: LYMPHOMA
  5. PREDNISONE [Suspect]
     Indication: LYMPHOMA

REACTIONS (3)
  - BONE MARROW FAILURE [None]
  - PNEUMONIA ASPIRATION [None]
  - DELIRIUM [None]
